FAERS Safety Report 13479111 (Version 2)
Quarter: 2017Q3

REPORT INFORMATION
  Report Type: Report from Study
  Country: US (occurrence: US)
  Receive Date: 20170424
  Receipt Date: 20170728
  Transmission Date: 20171127
  Serious: No
  Sender: FDA-Public Use
  Company Number: US-AMGEN-USASL2017034885

PATIENT
  Age: 64 Year
  Sex: Female

DRUGS (2)
  1. REPATHA [Suspect]
     Active Substance: EVOLOCUMAB
     Indication: ARTERIOSCLEROSIS
     Dosage: 140 MG, TWICE AMONTH
     Route: 065
  2. REPATHA [Suspect]
     Active Substance: EVOLOCUMAB
     Dosage: 420 MG/3ML, UNK
     Route: 065

REACTIONS (2)
  - Pruritus [Unknown]
  - Back pain [Unknown]

NARRATIVE: CASE EVENT DATE: 201701
